FAERS Safety Report 23731713 (Version 1)
Quarter: 2024Q2

REPORT INFORMATION
  Report Type: Spontaneous
  Country: IT (occurrence: IT)
  Receive Date: 20240411
  Receipt Date: 20240411
  Transmission Date: 20240716
  Serious: Yes (Life-Threatening, Hospitalization, Other)
  Sender: FDA-Public Use
  Company Number: None

PATIENT
  Age: 42 Year
  Sex: Female

DRUGS (14)
  1. VALGANCICLOVIR [Suspect]
     Active Substance: VALGANCICLOVIR
     Indication: Cytomegalovirus infection reactivation
     Dosage: FOR OROPHARYNGEAL CANDIDIASIS AND CYTOMEGALOVIRUS (CMV) PROPHYLAXIS
  2. VALGANCICLOVIR [Suspect]
     Active Substance: VALGANCICLOVIR
     Indication: Antiviral prophylaxis
     Dosage: FOR OROPHARYNGEAL CANDIDIASIS AND CYTOMEGALOVIRUS (CMV) PROPHYLAXIS
  3. VALGANCICLOVIR [Suspect]
     Active Substance: VALGANCICLOVIR
     Indication: Cytomegalovirus infection reactivation
     Dosage: CMV REACTIVATION TREATMENT
  4. VALGANCICLOVIR [Suspect]
     Active Substance: VALGANCICLOVIR
     Indication: Antiviral prophylaxis
     Dosage: CMV REACTIVATION TREATMENT
  5. METHYLPREDNISOLONE [Suspect]
     Active Substance: METHYLPREDNISOLONE
     Indication: Immunosuppressant drug therapy
     Route: 042
  6. AMBISOME [Suspect]
     Active Substance: AMPHOTERICIN B
     Indication: Mucormycosis
     Dosage: 5 MG/KG, UNK
     Route: 042
  7. POSACONAZOLE [Suspect]
     Active Substance: POSACONAZOLE
     Indication: Mucormycosis
     Dosage: 100 MG, TID, TARGET TROUGH 1-2 UG/ML?DAILY DOSE: 300 MILLIGRAM
     Route: 048
  8. POSACONAZOLE [Suspect]
     Active Substance: POSACONAZOLE
     Indication: Mucormycosis
     Dosage: POSACONAZOLE
     Route: 048
  9. TACROLIMUS [Suspect]
     Active Substance: TACROLIMUS
     Indication: Renal and liver transplant
     Dosage: BID?DAILY DOSE: 1000 MILLIGRAM
     Route: 048
  10. TACROLIMUS [Suspect]
     Active Substance: TACROLIMUS
     Indication: Renal and liver transplant
     Dosage: TARGET TROUGH LEVEL OF 4 TO 7 NG/ML,
     Route: 048
  11. MYCOPHENOLATE MOFETIL [Suspect]
     Active Substance: MYCOPHENOLATE MOFETIL
     Indication: Immunosuppressant drug therapy
     Dosage: 250 MG, BID?DAILY DOSE: 500 MILLIGRAM
  12. MYCOPHENOLATE MOFETIL [Suspect]
     Active Substance: MYCOPHENOLATE MOFETIL
     Indication: Renal and liver transplant
     Dosage: 500 MG, BID?DAILY DOSE: 1000 MILLIGRAM
  13. NYSTATIN [Concomitant]
     Active Substance: NYSTATIN
     Indication: Oropharyngeal candidiasis
  14. AMPHOTERICIN B [Concomitant]
     Active Substance: AMPHOTERICIN B
     Indication: Mucormycosis

REACTIONS (12)
  - Renal impairment [Recovering/Resolving]
  - Kidney transplant rejection [Recovering/Resolving]
  - Oral disorder [Unknown]
  - Gastrointestinal mucormycosis [Recovered/Resolved]
  - Cytomegalovirus infection reactivation [Unknown]
  - Gastric ulcer [Recovering/Resolving]
  - Renal tubular necrosis [Recovered/Resolved]
  - BK virus infection [Recovered/Resolved]
  - Renal haemorrhage [Unknown]
  - Chronic gastritis [Unknown]
  - Shock haemorrhagic [Unknown]
  - Off label use [Unknown]
